FAERS Safety Report 7118589-0 (Version None)
Quarter: 2010Q4

REPORT INFORMATION
  Report Type: 
  Country: None (occurrence: None)
  Receive Date: 20101123
  Receipt Date: 20100408
  Transmission Date: 20110411
  Serious: No
  Sender: FDA-Public Use
  Company Number: US-MYLANLABS-2010S1005981

PATIENT
  Age: 70 Year
  Sex: Female
  Weight: 77.11 kg

DRUGS (5)
  1. NADOLOL [Suspect]
     Indication: BLOOD PRESSURE INCREASED
     Route: 048
  2. NADOLOL [Suspect]
     Route: 048
  3. NADOLOL [Suspect]
     Route: 048
     Dates: start: 20090601, end: 20090601
  4. BENICAR [Concomitant]
  5. NORVASC [Concomitant]

REACTIONS (3)
  - ANXIETY [None]
  - BLOOD PRESSURE INCREASED [None]
  - REACTION TO DRUG EXCIPIENTS [None]
